FAERS Safety Report 5732834-5 (Version None)
Quarter: 2008Q2

REPORT INFORMATION
  Report Type: 
  Country: None (occurrence: None)
  Receive Date: 20080507
  Receipt Date: 20080507
  Transmission Date: 20081010
  Serious: No
  Sender: FDA-Public Use
  Company Number: None

PATIENT
  Sex: Female
  Weight: 77.1115 kg

DRUGS (2)
  1. FLUTICASONE PROPIONATE [Suspect]
     Indication: COUGH
     Dosage: 2 SPRAYS EACH NOSTRIL      EVERY DAY      NASAL
     Route: 045
     Dates: start: 20070619, end: 20080101
  2. FLUTICASONE PROPIONATE [Suspect]
     Indication: RESPIRATORY TRACT CONGESTION
     Dosage: 2 SPRAYS EACH NOSTRIL      EVERY DAY      NASAL
     Route: 045
     Dates: start: 20070619, end: 20080101

REACTIONS (1)
  - ANOSMIA [None]
